FAERS Safety Report 11069809 (Version 1)
Quarter: 2015Q2

REPORT INFORMATION
  Report Type: Spontaneous
  Country: TR (occurrence: TR)
  Receive Date: 20150427
  Receipt Date: 20150427
  Transmission Date: 20150821
  Serious: Yes (Death, Hospitalization, Other)
  Sender: FDA-Public Use
  Company Number: TR-TAKEDA-2015TUS005434

PATIENT
  Age: 44 Month
  Sex: Female

DRUGS (1)
  1. COLCHICINE. [Suspect]
     Active Substance: COLCHICINE
     Indication: ACCIDENTAL EXPOSURE TO PRODUCT
     Dosage: 8 MG (17 TABLETS)
     Route: 065

REACTIONS (7)
  - Cardiac arrest [Fatal]
  - Tachycardia [Not Recovered/Not Resolved]
  - Accidental overdose [Unknown]
  - Toxicity to various agents [Unknown]
  - Hepatic function abnormal [Unknown]
  - Rhabdomyolysis [Unknown]
  - Leukocytosis [Unknown]
